FAERS Safety Report 12285704 (Version 1)
Quarter: 2016Q2

REPORT INFORMATION
  Report Type: Spontaneous
  Country: US (occurrence: None)
  Receive Date: 20160419
  Receipt Date: 20160419
  Transmission Date: 20160815
  Serious: Yes (Hospitalization)
  Sender: FDA-Public Use
  Company Number: None

PATIENT
  Age: 68 Year
  Sex: Female
  Weight: 84 kg

DRUGS (1)
  1. LENALIDOMIDE (CC-5013) [Suspect]
     Active Substance: LENALIDOMIDE
     Dosage: CYCLE 8 DAY 8 (4/5/16) THERAPY HELD
     Dates: end: 20160404

REACTIONS (6)
  - Small intestinal obstruction [None]
  - Hypothermia [None]
  - Surgical procedure repeated [None]
  - Blood pressure abnormal [None]
  - Adhesion [None]
  - Gastrointestinal necrosis [None]

NARRATIVE: CASE EVENT DATE: 20160405
